FAERS Safety Report 8601010-0 (Version None)
Quarter: 2012Q3

REPORT INFORMATION
  Report Type: 
  Country: None (occurrence: None)
  Receive Date: 20120817
  Receipt Date: 20120807
  Transmission Date: 20120928
  Serious: Yes (Other)
  Sender: FDA-Public Use
  Company Number: JP-ASTELLAS-2012JP007547

PATIENT
  Age: 44 Year
  Sex: Female

DRUGS (4)
  1. PROTOPIC [Suspect]
     Indication: LICHEN PLANUS
     Route: 061
  2. METHYLPREDNISOLONE [Concomitant]
     Dosage: UNK
     Route: 065
  3. PREDNISOLONE [Concomitant]
     Route: 065
  4. POLYGAM S/D [Concomitant]
     Dosage: UNK
     Route: 065

REACTIONS (2)
  - LICHEN PLANUS [None]
  - DRUG INEFFECTIVE FOR UNAPPROVED INDICATION [None]
